FAERS Safety Report 8237172-7 (Version None)
Quarter: 2012Q1

REPORT INFORMATION
  Report Type: 
  Country: None (occurrence: None)
  Receive Date: 20120327
  Receipt Date: 20120316
  Transmission Date: 20120608
  Serious: No
  Sender: FDA-Public Use
  Company Number: DE-UCBSA-053642

PATIENT

DRUGS (1)
  1. KEPPRA [Suspect]

REACTIONS (1)
  - THROMBOCYTOPENIA [None]
